FAERS Safety Report 9414456 (Version 1)
Quarter: 2013Q3

REPORT INFORMATION
  Report Type: Spontaneous
  Country: US (occurrence: US)
  Receive Date: 20130723
  Receipt Date: 20130723
  Transmission Date: 20140515
  Serious: Yes (Other)
  Sender: FDA-Public Use
  Company Number: US-JHP PHARMACEUTICALS, LLC-JHP201300467

PATIENT
  Age: 25 Year
  Sex: Female

DRUGS (3)
  1. KETALAR [Suspect]
     Indication: OBSESSIVE-COMPULSIVE DISORDER
     Route: 042
  2. CLOMIPRAMINE [Concomitant]
  3. ESCITALOPRAM [Concomitant]

REACTIONS (13)
  - Suicidal ideation [Recovered/Resolved]
  - Off label use [Recovered/Resolved]
  - Derealisation [Unknown]
  - Hallucination, visual [Unknown]
  - Parosmia [Unknown]
  - Dysgeusia [Unknown]
  - Tearfulness [Unknown]
  - Sleep disorder [Unknown]
  - Depressed mood [Unknown]
  - Anhedonia [Unknown]
  - Decreased appetite [Unknown]
  - Anxiety [Unknown]
  - Trichotillomania [Unknown]
